FAERS Safety Report 5500757-2 (Version None)
Quarter: 2007Q4

REPORT INFORMATION
  Report Type: 
  Country: None (occurrence: None)
  Receive Date: 20071024
  Receipt Date: 20070220
  Transmission Date: 20080405
  Serious: Yes (Life-Threatening)
  Sender: FDA-Public Use
  Company Number: 200618345US

PATIENT
  Age: 66 Year
  Sex: Male

DRUGS (13)
  1. TRENTAL [Suspect]
     Indication: OEDEMA PERIPHERAL
     Dosage: 4500 MG BID
     Dates: start: 20060826, end: 20060831
  2. UNKNOWN STUDY DRUG [Concomitant]
  3. PLAVIX [Concomitant]
  4. ASPIRIN [Concomitant]
  5. NIFEDIPINE (PROCARDIA) [Concomitant]
  6. HYDROCHLOROTHIAZIDE [Concomitant]
  7. LOSARTAN POTASSIUM (HYZAAR) [Concomitant]
  8. PRAMIPEXOLE DIHYDROCHLORIDE (MIRAPEX) [Concomitant]
  9. WELLBUTRIN [Concomitant]
  10. METOPROLOL SUCCINATE (TOPROL) [Concomitant]
  11. SIMVASTATIN, EZETIMIBE (VYTORIN) [Concomitant]
  12. RANITIDINE HYDROCHLORIDE (ZANTAC) [Concomitant]
  13. ESZOPICLONE (LUNESTA) [Concomitant]

REACTIONS (11)
  - CHEST DISCOMFORT [None]
  - DYSPHAGIA [None]
  - DYSPNOEA [None]
  - ERYTHEMA [None]
  - FLUSHING [None]
  - HYPERHIDROSIS [None]
  - HYPERSENSITIVITY [None]
  - PRURITUS [None]
  - PRURITUS GENERALISED [None]
  - SPEECH DISORDER [None]
  - SWOLLEN TONGUE [None]
